FAERS Safety Report 7138107-0 (Version None)
Quarter: 2010Q4

REPORT INFORMATION
  Report Type: 
  Country: None (occurrence: None)
  Receive Date: 20101206
  Receipt Date: 20101130
  Transmission Date: 20110411
  Serious: Yes (Other)
  Sender: FDA-Public Use
  Company Number: US-AMGEN-USASP2010007154

PATIENT

DRUGS (1)
  1. NPLATE [Suspect]
     Indication: IDIOPATHIC THROMBOCYTOPENIC PURPURA
     Dosage: UNK
     Dates: start: 20101117

REACTIONS (5)
  - ANISOCYTOSIS [None]
  - LEUKOCYTOSIS [None]
  - PLATELET MORPHOLOGY ABNORMAL [None]
  - POIKILOCYTOSIS [None]
  - THROMBOCYTOPENIA [None]
